FAERS Safety Report 6431162-2 (Version None)
Quarter: 2009Q4

REPORT INFORMATION
  Report Type: 
  Country: None (occurrence: None)
  Receive Date: 20091105
  Receipt Date: 20091105
  Transmission Date: 20100525
  Serious: Yes (Other)
  Sender: FDA-Public Use
  Company Number: None

PATIENT
  Sex: Female
  Weight: 3.1752 kg

DRUGS (1)
  1. GENTAK [Suspect]
     Dosage: 1 STRIP ON THE EYE X 1 OPHTHALMIC OINTMENT
     Route: 047
     Dates: start: 20091030

REACTIONS (6)
  - BLISTER [None]
  - ERYTHEMA [None]
  - SCAB [None]
  - SECRETION DISCHARGE [None]
  - SKIN IRRITATION [None]
  - SKIN SWELLING [None]
